FAERS Safety Report 13354566 (Version 1)
Quarter: 2017Q1

REPORT INFORMATION
  Report Type: Spontaneous
  Country: ES (occurrence: ES)
  Receive Date: 20170321
  Receipt Date: 20170321
  Transmission Date: 20170429
  Serious: Yes (Other)
  Sender: FDA-Public Use
  Company Number: ES-TEVA-751158ROM

PATIENT
  Age: 74 Year
  Sex: Male

DRUGS (1)
  1. GEMCITABINE [Suspect]
     Active Substance: GEMCITABINE\GEMCITABINE HYDROCHLORIDE
     Indication: ADENOCARCINOMA PANCREAS
     Route: 065
     Dates: start: 201312, end: 20140513

REACTIONS (4)
  - Renal failure [Recovering/Resolving]
  - Haemolytic uraemic syndrome [Recovering/Resolving]
  - Oedema [Recovering/Resolving]
  - Retinopathy hypertensive [Recovering/Resolving]
